FAERS Safety Report 5913293-6 (Version None)
Quarter: 2008Q4

REPORT INFORMATION
  Report Type: 
  Country: None (occurrence: None)
  Receive Date: 20081008
  Receipt Date: 20081008
  Transmission Date: 20090506
  Serious: No
  Sender: FDA-Public Use
  Company Number: None

PATIENT
  Age: 80 Year
  Sex: Male
  Weight: 106.5953 kg

DRUGS (2)
  1. FLOMAX [Suspect]
     Indication: PROSTATOMEGALY
     Dosage: 1 CAPSUL DAILY AM PO
     Route: 048
     Dates: start: 20081004, end: 20081005
  2. FLOMAX [Suspect]
     Indication: RESIDUAL URINE
     Dosage: 1 CAPSUL DAILY AM PO
     Route: 048
     Dates: start: 20081004, end: 20081005

REACTIONS (2)
  - ABNORMAL SENSATION IN EYE [None]
  - ANAEMIA [None]
